FAERS Safety Report 9271593 (Version 3)
Quarter: 2013Q4

REPORT INFORMATION
  Report Type: Spontaneous
  Country: JP (occurrence: JP)
  Receive Date: 20130506
  Receipt Date: 20131015
  Transmission Date: 20140711
  Serious: Yes (Life-Threatening, Hospitalization, Disabling)
  Sender: FDA-Public Use
  Company Number: JP-SANOFI-AVENTIS-2013SA044340

PATIENT
  Age: 75 Year
  Sex: Male
  Weight: 42 kg

DRUGS (6)
  1. AMARYL [Suspect]
     Indication: DIABETES MELLITUS
     Route: 048
  2. FENOFIBRATE [Suspect]
     Indication: PRODUCT USED FOR UNKNOWN INDICATION
     Route: 065
  3. NESINA [Suspect]
     Indication: DIABETES MELLITUS
     Route: 065
  4. ACTOS [Concomitant]
     Indication: DIABETES MELLITUS
  5. LASIX [Concomitant]
  6. ZYLORIC [Concomitant]

REACTIONS (3)
  - Osmotic demyelination syndrome [Recovered/Resolved]
  - Hypoglycaemia [Recovered/Resolved]
  - Depressed level of consciousness [Recovered/Resolved]
